FAERS Safety Report 5368282-X (Version None)
Quarter: 2007Q2

REPORT INFORMATION
  Report Type: 
  Country: None (occurrence: None)
  Receive Date: 20070620
  Receipt Date: 20070614
  Transmission Date: 20071010
  Serious: Yes (Hospitalization, Other)
  Sender: FDA-Public Use
  Company Number: 200605IM000259

PATIENT
  Age: 67 Year
  Sex: Male
  Weight: 127.0072 kg

DRUGS (14)
  1. INTERFERON GAMMA-1B [Suspect]
     Indication: IDIOPATHIC PULMONARY FIBROSIS
     Dosage: 200 UG, TIW, SUBCUTANEOUS
     Route: 058
     Dates: start: 20040909, end: 20060428
  2. INTERFERON GAMMA-1B [Suspect]
     Indication: IDIOPATHIC PULMONARY FIBROSIS
     Dosage: 200 UG, TIW, SUBCUTANEOUS
     Route: 058
     Dates: start: 20060512
  3. GLUCOPHAGE [Concomitant]
  4. AVANDIA [Concomitant]
  5. TOPROL-XL [Concomitant]
  6. ASPIRIN [Concomitant]
  7. NEXIUM [Concomitant]
  8. EXTRA STRENGTH TYLENOL [Concomitant]
  9. TYLENOL [Concomitant]
  10. VITAMIN CAP [Concomitant]
  11. LIPITOR [Concomitant]
  12. AMARYL [Concomitant]
  13. IBUPROFEN [Concomitant]
  14. LISINOPRIL [Concomitant]

REACTIONS (8)
  - ARTERIAL DISORDER [None]
  - CAROTID ARTERY STENOSIS [None]
  - CEREBRAL ISCHAEMIA [None]
  - GLOSSOPHARYNGEAL NEURALGIA [None]
  - HAEMORRHAGIC CEREBRAL INFARCTION [None]
  - HYPOAESTHESIA [None]
  - INFLUENZA LIKE ILLNESS [None]
  - ULCER [None]
